FAERS Safety Report 8848617 (Version 1)
Quarter: 2012Q4

REPORT INFORMATION
  Report Type: 
  Country: US (occurrence: US)
  Receive Date: 20121018
  Receipt Date: 20121018
  Transmission Date: 20130627
  Serious: Yes (Other)
  Sender: FDA-Public Use
  Company Number: US-BAYER-2012-108921

PATIENT
  Age: 50 Year
  Sex: Female

DRUGS (1)
  1. CIPRO [Suspect]
     Dosage: 250 mg, ONCE
     Route: 048
     Dates: start: 20121012

REACTIONS (3)
  - Vaginal erosion [None]
  - Vulvovaginal swelling [None]
  - Vulvovaginal pain [None]
